FAERS Safety Report 10618361 (Version 2)
Quarter: 2014Q4

REPORT INFORMATION
  Report Type: Spontaneous
  Country: US (occurrence: US)
  Receive Date: 20141202
  Receipt Date: 20141202
  Transmission Date: 20150529
  Serious: Yes (Disabling)
  Sender: FDA-Public Use
  Company Number: US-TEVA-406853USA

PATIENT
  Sex: Male

DRUGS (2)
  1. SYNTHROID [Concomitant]
     Active Substance: LEVOTHYROXINE SODIUM
  2. AZITHROMYCIN [Suspect]
     Active Substance: AZITHROMYCIN ANHYDROUS
     Indication: SINUSITIS
     Dosage: 2 TABLETS AS ONE DOSE FIRST DAY, THEN 1 TABLET DAILY
     Route: 048

REACTIONS (6)
  - Pain [Recovered/Resolved]
  - Cough [Unknown]
  - Rhinitis [Recovered/Resolved]
  - Hypogeusia [Recovered/Resolved]
  - Asthenia [Recovered/Resolved]
  - Parosmia [Recovered/Resolved]
